FAERS Safety Report 11214298 (Version 2)
Quarter: 2015Q3

REPORT INFORMATION
  Report Type: Report from Study
  Country: IT (occurrence: IT)
  Receive Date: 20150624
  Receipt Date: 20150724
  Transmission Date: 20151125
  Serious: Yes (Hospitalization)
  Sender: FDA-Public Use
  Company Number: IT-ROCHE-1597952

PATIENT
  Age: 74 Year

DRUGS (1)
  1. BEVACIZUMAB [Suspect]
     Active Substance: BEVACIZUMAB
     Indication: OVARIAN CANCER
     Dosage: LAST DOSE PRIOR TO SAE: 25/MAY/2015
     Route: 065
     Dates: start: 20141119

REACTIONS (1)
  - Unevaluable event [Recovered/Resolved with Sequelae]

NARRATIVE: CASE EVENT DATE: 20150616
